FAERS Safety Report 9142664 (Version 3)
Quarter: 2013Q4

REPORT INFORMATION
  Report Type: Report from Study
  Country: BR (occurrence: BR)
  Receive Date: 20130306
  Receipt Date: 20131106
  Transmission Date: 20140711
  Serious: Yes (Death, Hospitalization, Other)
  Sender: FDA-Public Use
  Company Number: PHHY2013BR021647

PATIENT
  Sex: Male
  Weight: 72 kg

DRUGS (4)
  1. ACLASTA [Suspect]
     Indication: OSTEOPOROSIS
     Dosage: 5 MG, ONCE
     Route: 042
     Dates: start: 201201
  2. HUMIRA [Suspect]
     Indication: ARTHRITIS
     Dosage: 1 DF, 1  APPLICATION SUBCUTANEOUSLY EVERY 15 DAYS
     Route: 058
  3. GARDENAL [Concomitant]
     Indication: BRAIN HYPOXIA
     Dosage: 2 DF, A DAY
     Route: 048
  4. ENALAPRIL [Concomitant]
     Indication: HYPERTENSION
     Dosage: 2 DF, A DAY
     Route: 048

REACTIONS (4)
  - Acute respiratory failure [Fatal]
  - Aspiration bronchial [Fatal]
  - Pneumonia [Not Recovered/Not Resolved]
  - Dysphagia [Not Recovered/Not Resolved]
